FAERS Safety Report 16456927 (Version 1)
Quarter: 2019Q3

REPORT INFORMATION
  Report Type: Spontaneous
  Country: US (occurrence: US)
  Receive Date: 20190619
  Receipt Date: 20190619
  Transmission Date: 20191004
  Serious: Yes (Other)
  Sender: FDA-Public Use
  Company Number: None

PATIENT
  Age: 85 Year
  Sex: Male

DRUGS (5)
  1. VALACYCLOVIR TAB 500 MG [Concomitant]
  2. NINLARO [Suspect]
     Active Substance: IXAZOMIB CITRATE
     Indication: PLASMA CELL MYELOMA
     Dosage: ?          OTHER FREQUENCY:ON DAYS 1, 8, 15;?
     Route: 048
     Dates: start: 20180830
  3. ATORVASTATIN TAB 20 MG [Concomitant]
  4. CLOPIDIGREL TAB 75 MG [Concomitant]
  5. ASPIRIN LOW TAB 81 MG EC [Concomitant]

REACTIONS (3)
  - Asthenia [None]
  - Muscular weakness [None]
  - Therapy change [None]

NARRATIVE: CASE EVENT DATE: 20190614
